FAERS Safety Report 6027915-5 (Version None)
Quarter: 2008Q4

REPORT INFORMATION
  Report Type: 
  Country: None (occurrence: None)
  Receive Date: 20081230
  Receipt Date: 20081219
  Transmission Date: 20090506
  Serious: Yes (Hospitalization)
  Sender: FDA-Public Use
  Company Number: GXKR2008DE12050

PATIENT
  Age: 53 Year
  Sex: Male

DRUGS (8)
  1. ACETYLSALICYLIC ACID SRT [Suspect]
     Indication: MUSCULOSKELETAL PAIN
     Dosage: 100 MG, QD, ORAL
     Route: 048
     Dates: start: 20070701
  2. DOMINAL ^ASTA^ (PROTHIPENDYL HYDROCHLORIDE) [Suspect]
     Dosage: 40 MG, PRN, ORAL
     Route: 048
     Dates: start: 20080711
  3. LORAZEPAM [Suspect]
     Dosage: 1.5 MG, QD ; 1.75 MG, QD, ORAL ; 2 MG, QD, ORAL ; 2.5 MG, QD, ORAL
     Dates: start: 20080301, end: 20080608
  4. LORAZEPAM [Suspect]
     Dosage: 1.5 MG, QD ; 1.75 MG, QD, ORAL ; 2 MG, QD, ORAL ; 2.5 MG, QD, ORAL
     Dates: start: 20080625, end: 20080630
  5. LORAZEPAM [Suspect]
     Dosage: 1.5 MG, QD ; 1.75 MG, QD, ORAL ; 2 MG, QD, ORAL ; 2.5 MG, QD, ORAL
     Dates: start: 20080701, end: 20080704
  6. LORAZEPAM [Suspect]
     Dosage: 1.5 MG, QD ; 1.75 MG, QD, ORAL ; 2 MG, QD, ORAL ; 2.5 MG, QD, ORAL
     Dates: start: 20080705, end: 20080721
  7. VENLAFAXINE HCL [Suspect]
     Dosage: 150 MG, QD ; 75 MG, QD
     Dates: start: 20080625, end: 20080630
  8. VENLAFAXINE HCL [Suspect]
     Dosage: 150 MG, QD ; 75 MG, QD
     Dates: start: 20080701

REACTIONS (1)
  - SYNCOPE [None]
